FAERS Safety Report 8014639-8 (Version None)
Quarter: 2011Q4

REPORT INFORMATION
  Report Type: 
  Country: None (occurrence: None)
  Receive Date: 20111229
  Receipt Date: 20111124
  Transmission Date: 20120403
  Serious: No
  Sender: FDA-Public Use
  Company Number: PHHY2011AU57652

PATIENT
  Sex: Female

DRUGS (12)
  1. ZANTAC [Concomitant]
  2. SANDOSTATIN LAR [Suspect]
     Dosage: 20 MG, UNK
  3. KARVEA [Concomitant]
  4. INDAPAMIDE [Concomitant]
  5. SCOPOLAMINE [Concomitant]
  6. SANDOSTATIN LAR [Suspect]
     Dosage: 30 MG, UNK
  7. TEMAZEPAM [Concomitant]
  8. SANDOSTATIN [Suspect]
     Dosage: 0.1 ML, BID
  9. PROTHIADEN [Concomitant]
  10. SANDOSTATIN LAR [Suspect]
     Indication: ACROMEGALY
     Dosage: 30 MG, UNK
  11. ACETAMINOPHEN W/ CODEINE [Concomitant]
     Indication: PAIN
     Dosage: 3-4 TABLETS DAILY
  12. PRILOSEC [Concomitant]

REACTIONS (6)
  - PAIN [None]
  - MUSCLE SPASMS [None]
  - ABDOMINAL PAIN UPPER [None]
  - VOMITING [None]
  - NAUSEA [None]
  - HEADACHE [None]
